FAERS Safety Report 6810613-5 (Version None)
Quarter: 2010Q2

REPORT INFORMATION
  Report Type: 
  Country: None (occurrence: None)
  Receive Date: 20100630
  Receipt Date: 20100616
  Transmission Date: 20101027
  Serious: Yes (Other)
  Sender: FDA-Public Use
  Company Number: PHEH2008US03314

PATIENT
  Sex: Male

DRUGS (55)
  1. AREDIA [Suspect]
     Indication: NEOPLASM MALIGNANT
     Dosage: 90 MG, UNK
     Dates: end: 20070901
  2. ZOMETA [Suspect]
     Indication: NEOPLASM MALIGNANT
     Dosage: 4 MG, UNK
  3. AMOXICILLIN [Concomitant]
     Dosage: 500MG, Q8H
     Route: 048
  4. CHLORHEXIDINE [Concomitant]
  5. REVLIMID [Concomitant]
  6. DEXAMETHASONE [Concomitant]
  7. DECADRON [Concomitant]
     Dosage: 40 MG, QD
  8. PERIDEX [Concomitant]
     Dosage: UNK
  9. PENICILLIN ^GRUNENTHAL^ [Concomitant]
     Dosage: 500 MG, Q6H
     Dates: start: 20080107
  10. HYDROCORT [Concomitant]
  11. ENOXAPARIN [Concomitant]
  12. METRONIDAZOLE [Concomitant]
  13. LOPERAMIDE [Concomitant]
  14. MEGESTROL ACETATE [Concomitant]
  15. TEMAZEPAM [Concomitant]
  16. APAP TAB [Concomitant]
  17. ACYCLOVIR [Concomitant]
     Dosage: 200 MG, UNK
  18. ALUMINIUM + MAGNESIUM HYDROXIDE/DIMETICONE [Concomitant]
  19. FAMOTIDINE [Concomitant]
  20. FLUCONAZOLE [Concomitant]
  21. CALCIUM GLUCONATE [Concomitant]
  22. FUROSEMIDE [Concomitant]
  23. POTASSIUM CHLORIDE [Concomitant]
  24. DROPERIDOL [Concomitant]
  25. NEUPOGEN [Concomitant]
  26. GELCLAIR                                /UNK/ [Concomitant]
  27. DOLASETRON [Concomitant]
  28. LORAZEPAM [Concomitant]
  29. DOCUSATE SODIUM [Concomitant]
  30. WARFARIN SODIUM [Concomitant]
  31. AMANTADINE HCL [Concomitant]
  32. CEFUROXIME [Concomitant]
  33. LISINOPRIL [Concomitant]
     Dosage: 10 MG  DAILY
  34. RELAFEN [Concomitant]
     Dosage: 750 MG EVERY 12 HOURS
  35. VELCADE [Concomitant]
     Dosage: UNK
  36. ELAVIL [Concomitant]
     Dosage: UNK
  37. IMMU-G [Concomitant]
     Dosage: UNK
     Route: 042
  38. DIFLUCAN [Concomitant]
     Dosage: UNK
  39. ORAMORPH SR [Concomitant]
     Dosage: UNK
  40. CYTOXAN [Concomitant]
     Dosage: UNK
  41. ALLOPURINOL [Concomitant]
     Dosage: UNK
  42. RADIATION [Concomitant]
     Dosage: UNK
     Dates: start: 20010101
  43. MELPHALAN HYDROCHLORIDE [Concomitant]
  44. THALIDOMIDE [Concomitant]
  45. LEVOFLOXACIN [Concomitant]
  46. VANCOMYCIN [Concomitant]
  47. SKELAXIN [Concomitant]
     Dosage: 800 MG, QHS
  48. ANUSOL-HC                               /USA/ [Concomitant]
  49. PANTOPRAZOLE [Concomitant]
  50. CALCIUM CARBONATE [Concomitant]
  51. NEUPOGEN [Concomitant]
  52. MORPHINE SULFATE [Concomitant]
  53. PROCHLORPERAZINE [Concomitant]
  54. TOBRAMYCIN [Concomitant]
  55. ZOLPIDEM [Concomitant]

REACTIONS (71)
  - ACTINIC KERATOSIS [None]
  - ALTERED STATE OF CONSCIOUSNESS [None]
  - ANHEDONIA [None]
  - ANXIETY [None]
  - ARTHRALGIA [None]
  - ATELECTASIS [None]
  - BACK PAIN [None]
  - BARRETT'S OESOPHAGUS [None]
  - BLOOD PRESSURE DECREASED [None]
  - BONE LESION [None]
  - BONE MARROW TRANSPLANT [None]
  - BONE PAIN [None]
  - CARDIOMEGALY [None]
  - COMPRESSION FRACTURE [None]
  - COUGH [None]
  - DEEP VEIN THROMBOSIS [None]
  - DEPRESSION [None]
  - DIARRHOEA [None]
  - DISCOMFORT [None]
  - DIZZINESS [None]
  - DYSPNOEA [None]
  - EMOTIONAL DISTRESS [None]
  - FISTULA [None]
  - GASTROINTESTINAL HAEMORRHAGE [None]
  - HAEMATOCHEZIA [None]
  - HAEMATURIA [None]
  - HAEMORRHAGE [None]
  - HAEMORRHOID OPERATION [None]
  - HAEMORRHOIDAL HAEMORRHAGE [None]
  - HAEMORRHOIDS [None]
  - HEPATIC LESION [None]
  - HERPES SIMPLEX [None]
  - HERPES ZOSTER [None]
  - HIATUS HERNIA [None]
  - HYPOPHAGIA [None]
  - HYPOXIA [None]
  - INJURY [None]
  - INTERNATIONAL NORMALISED RATIO INCREASED [None]
  - INTERSTITIAL LUNG DISEASE [None]
  - LIFE EXPECTANCY SHORTENED [None]
  - LUNG INFILTRATION [None]
  - LUNG NEOPLASM MALIGNANT [None]
  - MASS [None]
  - METASTASES TO BONE [None]
  - MUSCLE SPASMS [None]
  - MUSCULOSKELETAL PAIN [None]
  - NEPHROLITHIASIS [None]
  - OESOPHAGEAL DILATATION [None]
  - OSTEOMYELITIS [None]
  - OSTEONECROSIS OF JAW [None]
  - PAIN [None]
  - PHYSICAL DISABILITY [None]
  - PNEUMONIA [None]
  - PROSTATE CANCER [None]
  - PROSTATIC SPECIFIC ANTIGEN INCREASED [None]
  - PROTHROMBIN TIME PROLONGED [None]
  - PULMONARY EMBOLISM [None]
  - PULMONARY FIBROSIS [None]
  - PYREXIA [None]
  - RADICULOPATHY [None]
  - RECTAL HAEMORRHAGE [None]
  - RECURRENT CANCER [None]
  - REFLUX OESOPHAGITIS [None]
  - RENAL DISORDER [None]
  - SCAR [None]
  - SKIN LESION EXCISION [None]
  - STEM CELL TRANSPLANT [None]
  - STRESS [None]
  - THROMBOCYTOPENIA [None]
  - TOOTH DISORDER [None]
  - TOTAL LUNG CAPACITY DECREASED [None]
